FAERS Safety Report 9067512 (Version 1)
Quarter: 2013Q1

REPORT INFORMATION
  Report Type: Spontaneous
  Country: US (occurrence: US)
  Receive Date: 20130214
  Receipt Date: 20130214
  Transmission Date: 20140127
  Serious: Yes (Other)
  Sender: FDA-Public Use
  Company Number: US-ELI_LILLY_AND_COMPANY-US201302000774

PATIENT
  Age: 70 None
  Sex: Female
  Weight: 72.56 kg

DRUGS (3)
  1. BYDUREON [Suspect]
     Dosage: 2 MG, WEEKLY (1/W)
     Route: 058
     Dates: start: 20130104
  2. KOMBIGLYZE [Concomitant]
     Indication: TYPE 2 DIABETES MELLITUS
     Dosage: 1000 MG, EACH EVENING
     Route: 048
  3. LANTUS [Concomitant]
     Indication: TYPE 2 DIABETES MELLITUS
     Dosage: 38 U, EACH EVENING
     Route: 058

REACTIONS (6)
  - Norovirus test positive [Recovering/Resolving]
  - Dehydration [Recovering/Resolving]
  - Weight decreased [Not Recovered/Not Resolved]
  - Blood glucose decreased [Recovering/Resolving]
  - Drug dose omission [Unknown]
  - Off label use [Unknown]
